FAERS Safety Report 5376474-9 (Version None)
Quarter: 2007Q2

REPORT INFORMATION
  Report Type: 
  Country: None (occurrence: None)
  Receive Date: 20070628
  Receipt Date: 20070628
  Transmission Date: 20071010
  Serious: Yes (Other)
  Sender: FDA-Public Use
  Company Number: None

PATIENT
  Age: 21 Year
  Sex: Male

DRUGS (4)
  1. MINOCYCLINE HCL [Suspect]
     Dates: start: 20060822, end: 20061025
  2. ALBUTEROL [Concomitant]
  3. ADVAIR DISKUS 100/50 [Concomitant]
  4. ALLEGRA D 24 HOUR [Concomitant]

REACTIONS (6)
  - AUTOIMMUNE HEPATITIS [None]
  - CHRONIC HEPATITIS [None]
  - HEPATIC FIBROSIS [None]
  - HEPATITIS [None]
  - LIVER INJURY [None]
  - WEIGHT DECREASED [None]
